FAERS Safety Report 18785132 (Version 3)
Quarter: 2022Q1

REPORT INFORMATION
  Report Type: Report from Study
  Country: JP (occurrence: JP)
  Receive Date: 20210125
  Receipt Date: 20220105
  Transmission Date: 20220423
  Serious: Yes (Other)
  Sender: FDA-Public Use
  Company Number: JP-UCBJ-CD202100438UCBPHAPROD

PATIENT
  Age: 94 Year
  Sex: Female
  Weight: 49.5 kg

DRUGS (14)
  1. LACOSAMIDE [Suspect]
     Active Substance: LACOSAMIDE
     Indication: Partial seizures with secondary generalisation
     Dosage: 50 MILLIGRAM, 2X/DAY (BID)
     Dates: start: 20191217, end: 20191230
  2. LACOSAMIDE [Suspect]
     Active Substance: LACOSAMIDE
     Dosage: 50 MILLIGRAM, 2X/DAY (BID)
     Route: 048
     Dates: end: 20200114
  3. LEVETIRACETAM [Concomitant]
     Active Substance: LEVETIRACETAM
     Indication: Partial seizures with secondary generalisation
     Dosage: 1000 MG DAILY
     Route: 041
     Dates: end: 20191217
  4. FOSPHENYTOIN SODIUM [Concomitant]
     Active Substance: FOSPHENYTOIN SODIUM
     Indication: Partial seizures with secondary generalisation
     Dosage: 750 MG DAILY
     Route: 042
     Dates: end: 20191218
  5. PHENOBARBITAL [Concomitant]
     Active Substance: PHENOBARBITAL
     Indication: Partial seizures with secondary generalisation
     Dosage: 200 MG DAILY
     Route: 042
     Dates: end: 20191217
  6. CEFOPERAZONE SODIUM\SULBACTAM SODIUM [Concomitant]
     Active Substance: CEFOPERAZONE SODIUM\SULBACTAM SODIUM
     Indication: Product used for unknown indication
     Dosage: 2 GRAM DAILY
     Route: 042
     Dates: end: 20191227
  7. EL-SOLUTION NO.3 [GLUCOSE;POTASSIUM CHLORIDE;POTASSIUM PHOSPHATE DIBAS [Concomitant]
     Indication: Product used for unknown indication
     Dosage: 1000 ML DAILY
     Route: 042
     Dates: end: 20191221
  8. EL-SOLUTION NO.3 [GLUCOSE;POTASSIUM CHLORIDE;POTASSIUM PHOSPHATE DIBAS [Concomitant]
     Dosage: 500 ML DAILY
     Route: 042
     Dates: start: 20191222, end: 20200102
  9. EL-SOLUTION NO.3 [GLUCOSE;POTASSIUM CHLORIDE;POTASSIUM PHOSPHATE DIBAS [Concomitant]
     Dosage: 1000 ML DAILY
     Route: 042
     Dates: start: 20200104, end: 20200110
  10. EL-SOLUTION NO.3 [GLUCOSE;POTASSIUM CHLORIDE;POTASSIUM PHOSPHATE DIBAS [Concomitant]
     Dosage: 500 ML DAILY
     Route: 042
     Dates: start: 20200111, end: 20200113
  11. PHENYTOIN [Concomitant]
     Active Substance: PHENYTOIN
     Indication: Partial seizures with secondary generalisation
     Dosage: 200 MG DAILY
     Route: 048
     Dates: start: 20191219, end: 20201225
  12. SENNOSIDES [Concomitant]
     Active Substance: SENNOSIDES
     Indication: Product used for unknown indication
     Dosage: 24 MG DAILY
     Route: 048
     Dates: start: 20191221, end: 20200108
  13. LEVETIRACETAM [Concomitant]
     Active Substance: LEVETIRACETAM
     Indication: Partial seizures with secondary generalisation
     Dosage: 1000 MG DAILY
     Route: 048
     Dates: end: 20191217
  14. BISACODYL [Concomitant]
     Active Substance: BISACODYL
     Indication: Product used for unknown indication

REACTIONS (5)
  - Atrial fibrillation [Recovering/Resolving]
  - Cardiac failure congestive [Recovered/Resolved]
  - Urinary tract infection [Recovered/Resolved]
  - Constipation [Recovered/Resolved]
  - Off label use [Unknown]

NARRATIVE: CASE EVENT DATE: 20191217
